FAERS Safety Report 15853972 (Version 4)
Quarter: 2019Q2

REPORT INFORMATION
  Report Type: Spontaneous
  Country: US (occurrence: US)
  Receive Date: 20190122
  Receipt Date: 20190528
  Transmission Date: 20190711
  Serious: No
  Sender: FDA-Public Use
  Company Number: US-PFIZER INC-2019023506

PATIENT
  Age: 66 Year
  Sex: Female
  Weight: 61.69 kg

DRUGS (8)
  1. DILANTIN [Suspect]
     Active Substance: PHENYTOIN
     Indication: SEIZURE
     Dosage: 100 MG, 2X/DAY
     Route: 048
     Dates: start: 1998
  2. DILANTIN [Suspect]
     Active Substance: PHENYTOIN
     Dosage: 300 MG, DAILY (3 PILLS FOR 6 MONTHS)
     Dates: start: 1998
  3. DILANTIN [Suspect]
     Active Substance: PHENYTOIN
     Dosage: 150 MG, DAILY (100 MG AM PLUS 50 MG PM)
     Dates: start: 2019
  4. ROSUVASTATIN. [Concomitant]
     Active Substance: ROSUVASTATIN
     Indication: BLOOD CHOLESTEROL ABNORMAL
     Dosage: 10 MG, 1X/DAY
  5. DILANTIN [Suspect]
     Active Substance: PHENYTOIN
     Dosage: 150 MG, DAILY [100MG IN THE MORNINGS AND ONE 50MG AT NIGHT]
  6. VITAMIN B12 [Concomitant]
     Active Substance: CYANOCOBALAMIN
     Dosage: UNK UNK, MONTHLY (EVERY 32 DAYS)
  7. DILANTIN [Suspect]
     Active Substance: PHENYTOIN
     Dosage: 50 MG, 1X/DAY (1 EVERY EVENING,)
  8. LISINOPRIL. [Concomitant]
     Active Substance: LISINOPRIL
     Indication: BLOOD PRESSURE ABNORMAL
     Dosage: 100 MG, 1X/DAY

REACTIONS (2)
  - Headache [Recovered/Resolved]
  - Drug level increased [Recovered/Resolved]

NARRATIVE: CASE EVENT DATE: 2018
